FAERS Safety Report 6038229-1 (Version None)
Quarter: 2009Q1

REPORT INFORMATION
  Report Type: 
  Country: None (occurrence: None)
  Receive Date: 20090115
  Receipt Date: 20090107
  Transmission Date: 20090719
  Serious: Yes (Hospitalization)
  Sender: FDA-Public Use
  Company Number: PHHO2007MX15045

PATIENT
  Age: 31 Year
  Sex: Female

DRUGS (1)
  1. CARBAMAZEPINE [Suspect]
     Indication: CONVULSION
     Dosage: UNK
     Dates: start: 20050101

REACTIONS (4)
  - BURNS SECOND DEGREE [None]
  - CONVULSION [None]
  - DRUG INEFFECTIVE [None]
  - SKIN GRAFT [None]
